FAERS Safety Report 4874719-2 (Version None)
Quarter: 2006Q1

REPORT INFORMATION
  Report Type: 
  Country: None (occurrence: None)
  Receive Date: 20060106
  Receipt Date: 20051005
  Transmission Date: 20060701
  Serious: Yes (Hospitalization)
  Sender: FDA-Public Use
  Company Number: US-MERCK-0510USA04412

PATIENT
  Age: 61 Year
  Sex: Female

DRUGS (9)
  1. VIOXX [Suspect]
     Route: 048
     Dates: start: 20020301, end: 20040901
  2. LASIX [Concomitant]
     Route: 065
  3. SINGULAIR [Concomitant]
     Route: 065
  4. KLOR-CON [Concomitant]
     Route: 065
  5. METFORMIN [Concomitant]
     Route: 065
  6. GLYBURIDE [Concomitant]
     Route: 065
  7. LISINOPRIL [Concomitant]
     Route: 065
  8. COREG [Concomitant]
     Route: 065
  9. COMBIVENT [Concomitant]
     Route: 065

REACTIONS (3)
  - ANAEMIA [None]
  - LACUNAR INFARCTION [None]
  - LEUKOCYTOSIS [None]
